FAERS Safety Report 15537000 (Version 1)
Quarter: 2018Q4

REPORT INFORMATION
  Report Type: Spontaneous
  Country: US (occurrence: US)
  Receive Date: 20181016
  Receipt Date: 20181016
  Transmission Date: 20190205
  Serious: Yes (Hospitalization)
  Sender: FDA-Public Use
  Company Number: None

PATIENT
  Age: 65 Year

DRUGS (1)
  1. XARELTO [Suspect]
     Active Substance: RIVAROXABAN
     Indication: ATRIAL FIBRILLATION

REACTIONS (4)
  - Rectal haemorrhage [None]
  - Gastrointestinal haemorrhage [None]
  - Dizziness [None]
  - Presyncope [None]

NARRATIVE: CASE EVENT DATE: 20170207
